FAERS Safety Report 14583688 (Version 1)
Quarter: 2018Q1

REPORT INFORMATION
  Report Type: Spontaneous
  Country: JP (occurrence: JP)
  Receive Date: 20180228
  Receipt Date: 20180228
  Transmission Date: 20180509
  Serious: Yes (Other)
  Sender: FDA-Public Use
  Company Number: JP-PFIZER INC-2017550171

PATIENT
  Age: 87 Year
  Sex: Male

DRUGS (3)
  1. HARNAL [Concomitant]
     Active Substance: TAMSULOSIN HYDROCHLORIDE
     Indication: BENIGN PROSTATIC HYPERPLASIA
     Dosage: UNK
     Route: 048
  2. TOVIAZ [Suspect]
     Active Substance: FESOTERODINE FUMARATE
     Indication: NOCTURIA
  3. TOVIAZ [Suspect]
     Active Substance: FESOTERODINE FUMARATE
     Indication: HYPERTONIC BLADDER
     Dosage: 4 MG, 1X/DAY
     Route: 048
     Dates: start: 20171215, end: 20171221

REACTIONS (6)
  - Condition aggravated [Recovering/Resolving]
  - Urinary retention [Recovering/Resolving]
  - Hydronephrosis [Recovering/Resolving]
  - Pollakiuria [Recovering/Resolving]
  - Dysuria [Recovering/Resolving]
  - Bladder dilatation [Unknown]

NARRATIVE: CASE EVENT DATE: 20171221
